FAERS Safety Report 24338477 (Version 4)
Quarter: 2025Q1

REPORT INFORMATION
  Report Type: Report from Study
  Country: US (occurrence: US)
  Receive Date: 20240919
  Receipt Date: 20250328
  Transmission Date: 20250409
  Serious: Yes (Hospitalization)
  Sender: TAKEDA
  Company Number: US-TAKEDA-US201611275

PATIENT
  Age: 58 Year
  Sex: Female
  Weight: 74 kg

DRUGS (13)
  1. HUMAN C1-ESTERASE INHIBITOR [Suspect]
     Active Substance: HUMAN C1-ESTERASE INHIBITOR
     Indication: Hereditary angioedema
  2. HUMAN C1-ESTERASE INHIBITOR [Suspect]
     Active Substance: HUMAN C1-ESTERASE INHIBITOR
     Indication: Prophylaxis
  3. HUMAN C1-ESTERASE INHIBITOR [Suspect]
     Active Substance: HUMAN C1-ESTERASE INHIBITOR
  4. TAKHZYRO [Suspect]
     Active Substance: LANADELUMAB-FLYO
     Indication: Hereditary angioedema
     Dosage: 300 MILLIGRAM, Q2WEEKS
     Dates: start: 20240620
  5. TAKHZYRO [Suspect]
     Active Substance: LANADELUMAB-FLYO
     Indication: Immune system disorder
     Dosage: 300 MILLIGRAM, Q2WEEKS
  6. TAKHZYRO [Suspect]
     Active Substance: LANADELUMAB-FLYO
  7. OMEPRAZOLE [Concomitant]
     Active Substance: OMEPRAZOLE
  8. ADVAIR HFA [Concomitant]
     Active Substance: FLUTICASONE PROPIONATE\SALMETEROL XINAFOATE
  9. FOLIC ACID [Concomitant]
     Active Substance: FOLIC ACID
  10. AZELASTINE HYDROCHLORIDE [Concomitant]
     Active Substance: AZELASTINE HYDROCHLORIDE
  11. PROAIR HFA [Concomitant]
     Active Substance: ALBUTEROL SULFATE
  12. ESZOPICLONE [Concomitant]
     Active Substance: ESZOPICLONE
  13. ICATIBANT [Concomitant]
     Active Substance: ICATIBANT ACETATE

REACTIONS (8)
  - Anaemia [Recovered/Resolved]
  - Injection site pain [Recovered/Resolved]
  - Infusion site discolouration [Unknown]
  - Bronchitis [Unknown]
  - Multiple allergies [Unknown]
  - Fall [Unknown]
  - Arthralgia [Unknown]
  - Infusion site pain [Unknown]

NARRATIVE: CASE EVENT DATE: 20160823
